FAERS Safety Report 15144007 (Version 1)
Quarter: 2018Q3

REPORT INFORMATION
  Report Type: Spontaneous
  Country: US (occurrence: US)
  Receive Date: 20180713
  Receipt Date: 20180713
  Transmission Date: 20181010
  Serious: Yes (Hospitalization)
  Sender: FDA-Public Use
  Company Number: US-SHIRE-US201824456

PATIENT
  Age: 74 Year
  Sex: Male

DRUGS (1)
  1. GATTEX [Suspect]
     Active Substance: TEDUGLUTIDE\WATER
     Indication: SHORT-BOWEL SYNDROME
     Dosage: UNK (DOSE:0.31)
     Route: 065
     Dates: start: 20170901

REACTIONS (4)
  - Pyrexia [Unknown]
  - Complication associated with device [Unknown]
  - Inappropriate schedule of drug administration [Recovered/Resolved]
  - Anorectal discomfort [Unknown]

NARRATIVE: CASE EVENT DATE: 20180521
